FAERS Safety Report 8407691-9 (Version None)
Quarter: 2012Q2

REPORT INFORMATION
  Report Type: 
  Country: None (occurrence: None)
  Receive Date: 20120604
  Receipt Date: 20120525
  Transmission Date: 20120825
  Serious: Yes (Other)
  Sender: FDA-Public Use
  Company Number: US-ASTRAZENECA-2009SE25020

PATIENT
  Age: 56 Year
  Sex: Female

DRUGS (2)
  1. NEXIUM [Suspect]
     Route: 048
  2. NEXIUM [Suspect]
     Dosage: GENERIC
     Route: 048

REACTIONS (8)
  - OESOPHAGEAL DISORDER [None]
  - DRUG DOSE OMISSION [None]
  - OESOPHAGEAL RUPTURE [None]
  - THROAT IRRITATION [None]
  - DRUG INEFFECTIVE [None]
  - PAIN [None]
  - DYSPHAGIA [None]
  - OESOPHAGEAL OEDEMA [None]
